FAERS Safety Report 11234592 (Version 1)
Quarter: 2015Q3

REPORT INFORMATION
  Report Type: Spontaneous
  Country: US (occurrence: US)
  Receive Date: 20150702
  Receipt Date: 20150702
  Transmission Date: 20151125
  Serious: Yes (Other)
  Sender: FDA-Public Use
  Company Number: 2015SP002241

PATIENT

DRUGS (3)
  1. LATUDA [Suspect]
     Active Substance: LURASIDONE HYDROCHLORIDE
     Indication: PRODUCT USED FOR UNKNOWN INDICATION
     Route: 048
  2. TEGRETOL [Suspect]
     Active Substance: CARBAMAZEPINE
  3. LITHIUM. [Concomitant]
     Active Substance: LITHIUM

REACTIONS (1)
  - Stevens-Johnson syndrome [Unknown]
